FAERS Safety Report 4662867-1 (Version None)
Quarter: 2005Q2

REPORT INFORMATION
  Report Type: 
  Country: None (occurrence: None)
  Receive Date: 20050502
  Receipt Date: 20050211
  Transmission Date: 20051028
  Serious: No
  Sender: FDA-Public Use
  Company Number: 200510911US

PATIENT
  Age: 50 Year
  Sex: Male
  Weight: 86.8 kg

DRUGS (7)
  1. KETEK [Suspect]
     Indication: CD4 LYMPHOCYTES DECREASED
  2. KETEK [Suspect]
     Indication: CHRONIC SINUSITIS
  3. PROLEUKIN [Concomitant]
  4. AMBIEN [Concomitant]
  5. LEVOTHYROXINE SODIUM (SHYNTHROID) [Concomitant]
  6. LEXAPRO [Concomitant]
  7. SULFAMETHOXAZOLE,TRIMETHOPRIM (SEPTRA DS) [Concomitant]

REACTIONS (1)
  - HEPATIC ENZYME INCREASED [None]
